FAERS Safety Report 9323596 (Version 2)
Quarter: 2014Q1

REPORT INFORMATION
  Report Type: Report from Study
  Country: US (occurrence: US)
  Receive Date: 20130603
  Receipt Date: 20140220
  Transmission Date: 20141002
  Serious: Yes (Death, Hospitalization, Other)
  Sender: FDA-Public Use
  Company Number: US-BAYER-2013-031970

PATIENT
  Age: 49 Year
  Sex: Female

DRUGS (2)
  1. NEXAVAR [Suspect]
     Indication: THYROID CANCER
     Dosage: 400 MG, BID
     Route: 048
     Dates: start: 20130222
  2. NEXAVAR [Suspect]
     Indication: THYROID CANCER
     Dosage: 400 MG, BID
     Route: 048
     Dates: end: 201305

REACTIONS (15)
  - Adverse drug reaction [None]
  - Fungal infection [Not Recovered/Not Resolved]
  - Death [Fatal]
  - Pleural effusion [None]
  - Swelling [None]
  - Rash generalised [None]
  - Stomatitis [Not Recovered/Not Resolved]
  - Hypertension [Recovered/Resolved]
  - Fatigue [Not Recovered/Not Resolved]
  - Off label use [None]
  - Pruritus [None]
  - Formication [None]
  - Sluggishness [None]
  - Weight decreased [None]
  - Alopecia [None]
